FAERS Safety Report 8200122-3 (Version None)
Quarter: 2012Q1

REPORT INFORMATION
  Report Type: 
  Country: None (occurrence: None)
  Receive Date: 20120312
  Receipt Date: 20120229
  Transmission Date: 20120608
  Serious: Yes (Hospitalization, Other)
  Sender: FDA-Public Use
  Company Number: JP-TEVA-2011004765

PATIENT
  Age: 77 Year
  Sex: Male
  Weight: 58 kg

DRUGS (13)
  1. ZOLPIDEM TARTRATE [Concomitant]
  2. MAGNESIUM OXIDE [Concomitant]
  3. BENDAMUSTINE HCL [Suspect]
     Route: 042
     Dates: start: 20110629, end: 20110630
  4. FEXOFENADINE HYDROCHLORIDE [Concomitant]
  5. BENDAMUSTINE HCL [Suspect]
     Route: 042
     Dates: start: 20110330, end: 20110331
  6. BENDAMUSTINE HCL [Suspect]
     Route: 042
     Dates: start: 20110427, end: 20110427
  7. BENDAMUSTINE HCL [Suspect]
     Route: 042
     Dates: start: 20110524, end: 20110525
  8. REBAMIPIDE [Concomitant]
  9. LANSOPRAZOLE [Concomitant]
  10. SULFAMETHOXAZOLE + TRIMETHOPRIM [Concomitant]
  11. BENDAMUSTINE HCL [Suspect]
     Indication: MANTLE CELL LYMPHOMA
     Route: 042
     Dates: start: 20110301, end: 20110302
  12. RITUXIMAB [Concomitant]
     Dates: start: 20110329, end: 20110628
  13. ACYCLOVIR [Concomitant]
     Dates: start: 20110307

REACTIONS (2)
  - DIVERTICULITIS INTESTINAL HAEMORRHAGIC [None]
  - PSEUDOMEMBRANOUS COLITIS [None]
